FAERS Safety Report 7850004-1 (Version None)
Quarter: 2011Q4

REPORT INFORMATION
  Report Type: 
  Country: None (occurrence: None)
  Receive Date: 20111026
  Receipt Date: 20111019
  Transmission Date: 20120403
  Serious: Yes (Hospitalization, Other)
  Sender: FDA-Public Use
  Company Number: DE-B.I. PHARMACEUTICALS,INC./RIDGEFIELD-2011-DE-05525DE

PATIENT
  Sex: Male

DRUGS (3)
  1. LEVOTHYROXINE SODIUM [Concomitant]
  2. PRADAXA [Suspect]
     Indication: CARDIAC FIBRILLATION
     Dosage: 220 MG
     Dates: start: 20110907, end: 20110913
  3. AMIODARONE HCL [Concomitant]

REACTIONS (7)
  - GASTROINTESTINAL HAEMORRHAGE [None]
  - THROMBOCYTOPENIA [None]
  - OESOPHAGEAL HAEMORRHAGE [None]
  - PLATELET COUNT DECREASED [None]
  - BLOOD CREATININE INCREASED [None]
  - DISCOMFORT [None]
  - BLOOD COUNT ABNORMAL [None]
